FAERS Safety Report 11106192 (Version 1)
Quarter: 2015Q2

REPORT INFORMATION
  Report Type: Spontaneous
  Country: AT (occurrence: AT)
  Receive Date: 20150512
  Receipt Date: 20150512
  Transmission Date: 20150821
  Serious: Yes (Death)
  Sender: FDA-Public Use
  Company Number: AT-BEH-2013038569

PATIENT
  Age: 42 Year

DRUGS (1)
  1. INTRAVENOUS IMMUNOGLOBULINS [Suspect]
     Active Substance: HUMAN IMMUNOGLOBULIN G
     Indication: ENCEPHALITIS AUTOIMMUNE
     Dosage: TWO SERIES
     Route: 042

REACTIONS (3)
  - Dysphagia [Fatal]
  - Encephalitis [Fatal]
  - Drug ineffective for unapproved indication [Fatal]
